FAERS Safety Report 5559487-3 (Version None)
Quarter: 2007Q4

REPORT INFORMATION
  Report Type: 
  Country: None (occurrence: None)
  Receive Date: 20071214
  Receipt Date: 20071004
  Transmission Date: 20080405
  Serious: No
  Sender: FDA-Public Use
  Company Number: US-ABBOTT-07P-163-0419603-00

PATIENT
  Sex: Male
  Weight: 97.7 kg

DRUGS (6)
  1. HUMIRA [Suspect]
     Indication: CROHN'S DISEASE
     Route: 058
     Dates: start: 20070924, end: 20070924
  2. HUMIRA [Suspect]
     Route: 058
     Dates: start: 20070906, end: 20070906
  3. HUMIRA [Suspect]
     Route: 058
     Dates: start: 20071008
  4. ESOMEPRAZOLE MAGNESIUM [Concomitant]
     Indication: GASTROOESOPHAGEAL REFLUX DISEASE
     Route: 048
  5. PREDNISONE [Concomitant]
     Indication: CROHN'S DISEASE
  6. LISINOPRIL [Concomitant]
     Indication: HYPERTENSION

REACTIONS (3)
  - DYSPNOEA [None]
  - PRURITUS GENERALISED [None]
  - RASH [None]
